FAERS Safety Report 14996272 (Version 1)
Quarter: 2018Q2

REPORT INFORMATION
  Report Type: Spontaneous
  Country: RU (occurrence: RU)
  Receive Date: 20180611
  Receipt Date: 20180611
  Transmission Date: 20180711
  Serious: Yes (Other)
  Sender: FDA-Public Use
  Company Number: RU-ASTRAZENECA-2017SF23953

PATIENT
  Age: 54 Year
  Sex: Male
  Weight: 82 kg

DRUGS (11)
  1. VITAMIN B NOS [Concomitant]
     Active Substance: VITAMIN B
  2. LYRICA [Concomitant]
     Active Substance: PREGABALIN
  3. PRESTARIUM A [Concomitant]
     Active Substance: PERINDOPRIL ARGININE
  4. CONCOR [Concomitant]
     Active Substance: BISOPROLOL FUMARATE
  5. BERLITHION [Concomitant]
  6. PENTOXIFYLLINE. [Concomitant]
     Active Substance: PENTOXIFYLLINE
  7. AMITRIPTYLINE [Concomitant]
     Active Substance: AMITRIPTYLINE
  8. ARIFON [Concomitant]
  9. CARDIOMAGNYL [Concomitant]
     Active Substance: ASPIRIN\MAGNESIUM HYDROXIDE
  10. LIPRIMAR [Concomitant]
     Active Substance: ATORVASTATIN CALCIUM
  11. BRILINTA [Suspect]
     Active Substance: TICAGRELOR
     Indication: MYOCARDIAL INFARCTION
     Route: 048
     Dates: start: 201701

REACTIONS (4)
  - Intentional product misuse [Not Recovered/Not Resolved]
  - Myocardial infarction [Recovered/Resolved]
  - Varicella [Not Recovered/Not Resolved]
  - Herpes zoster [Not Recovered/Not Resolved]

NARRATIVE: CASE EVENT DATE: 20171120
